FAERS Safety Report 7817885-9 (Version None)
Quarter: 2011Q4

REPORT INFORMATION
  Report Type: 
  Country: None (occurrence: None)
  Receive Date: 20111017
  Receipt Date: 20111013
  Transmission Date: 20120403
  Serious: Yes (Hospitalization)
  Sender: FDA-Public Use
  Company Number: US-BRISTOL-MYERS SQUIBB COMPANY-14491708

PATIENT
  Age: 63 Year
  Sex: Male
  Weight: 94 kg

DRUGS (8)
  1. METFORMIN HYDROCHLORIDE [Concomitant]
  2. LANTUS [Concomitant]
  3. OMEPRAZOLE [Concomitant]
  4. ERBITUX [Suspect]
     Indication: HEAD AND NECK CANCER
     Dosage: FIRST COURSE : 23DEC2008
     Dates: start: 20090119, end: 20090119
  5. GLYBURIDE [Concomitant]
  6. CISPLATIN [Suspect]
     Indication: HEAD AND NECK CANCER
     Dosage: FIRST COURSE : 23DEC2008
     Dates: start: 20090119, end: 20090119
  7. HUMALOG [Concomitant]
  8. ZOCOR [Concomitant]

REACTIONS (18)
  - NAUSEA [None]
  - HYPOALBUMINAEMIA [None]
  - HYPOPHOSPHATAEMIA [None]
  - BLOOD CREATININE INCREASED [None]
  - DEHYDRATION [None]
  - ANAEMIA [None]
  - HYPOMAGNESAEMIA [None]
  - DIARRHOEA [None]
  - RASH MACULO-PAPULAR [None]
  - DYSPHAGIA [None]
  - STOMATITIS [None]
  - HYPOCALCAEMIA [None]
  - EPISTAXIS [None]
  - VOMITING [None]
  - HYPOKALAEMIA [None]
  - HYPERGLYCAEMIA [None]
  - FATIGUE [None]
  - DECREASED APPETITE [None]
